FAERS Safety Report 6909878-0 (Version None)
Quarter: 2010Q3

REPORT INFORMATION
  Report Type: 
  Country: None (occurrence: None)
  Receive Date: 20100806
  Receipt Date: 20100728
  Transmission Date: 20110219
  Serious: No
  Sender: FDA-Public Use
  Company Number: US-BIOGENIDEC-2010BI026402

PATIENT
  Sex: Male

DRUGS (1)
  1. TYSABRI [Suspect]
     Indication: MULTIPLE SCLEROSIS
     Route: 042
     Dates: start: 20070626

REACTIONS (6)
  - ABASIA [None]
  - CHOKING [None]
  - COORDINATION ABNORMAL [None]
  - DYSPHONIA [None]
  - ILL-DEFINED DISORDER [None]
  - MUSCULAR WEAKNESS [None]
